FAERS Safety Report 8160726-3 (Version None)
Quarter: 2012Q1

REPORT INFORMATION
  Report Type: 
  Country: None (occurrence: None)
  Receive Date: 20120223
  Receipt Date: 20120209
  Transmission Date: 20120608
  Serious: Yes (Other)
  Sender: FDA-Public Use
  Company Number: PHHY2012US014525

PATIENT

DRUGS (2)
  1. DEFERASIROX [Suspect]
     Indication: ZYGOMYCOSIS
     Dosage: 20 MG/KG, DAILY
  2. AMPHOTERICIN B [Suspect]
     Indication: ZYGOMYCOSIS
     Dosage: UNK UKN, UNK

REACTIONS (2)
  - DISORDER OF ORBIT [None]
  - NASAL DISORDER [None]
